FAERS Safety Report 4601106-4 (Version None)
Quarter: 2005Q1

REPORT INFORMATION
  Report Type: 
  Country: None (occurrence: None)
  Receive Date: 20050204
  Receipt Date: 20050112
  Transmission Date: 20050727
  Serious: Yes (Other)
  Sender: FDA-Public Use
  Company Number: US-2004-033717

PATIENT
  Age: 43 Year
  Sex: Female
  Weight: 67.6 kg

DRUGS (3)
  1. MIRENA [Suspect]
     Indication: DYSFUNCTIONAL UTERINE BLEEDING
     Dosage: 20 UG/DAY, CONT, INTRA-UTERINE
     Route: 015
     Dates: start: 20040513, end: 20041008
  2. SANSERT [Concomitant]
  3. IMITREX ^GLAXO WELLCOME^ (SUMATRIPTAN SUCCINATE) [Concomitant]

REACTIONS (1)
  - ECZEMA [None]
